FAERS Safety Report 8821922 (Version 3)
Quarter: 2014Q2

REPORT INFORMATION
  Report Type: Spontaneous
  Country: US (occurrence: US)
  Receive Date: 20121003
  Receipt Date: 20140502
  Transmission Date: 20141212
  Serious: Yes (Hospitalization, Other)
  Sender: FDA-Public Use
  Company Number: US-009507513-1203USA01694

PATIENT
  Sex: Female
  Weight: 90.7 kg

DRUGS (12)
  1. FOSAMAX [Suspect]
     Indication: OSTEOPOROSIS
     Dosage: 10 MG DAILY
     Route: 048
  2. FOSAMAX [Suspect]
     Dosage: 70 MG, WEEKLY
     Route: 048
     Dates: start: 200201
  3. FOSAMAX PLUS D [Suspect]
     Indication: OSTEOPOROSIS
     Dosage: 70 MG/2800IU UNK
     Route: 048
     Dates: start: 20071001, end: 200806
  4. ALENDRONATE SODIUM [Suspect]
     Indication: OSTEOPOROSIS
     Dosage: 70 MG, UNK
     Route: 048
     Dates: start: 20080613, end: 20090409
  5. WARFARIN [Concomitant]
     Indication: THROMBOSIS
     Dosage: VARYING DOSES
     Dates: start: 1997
  6. COUMADIN [Concomitant]
     Indication: THROMBOSIS
     Dosage: 5-10 MG, DAILY
     Route: 048
     Dates: start: 1997
  7. VITAMINS (UNSPECIFIED) [Concomitant]
     Indication: PRODUCT USED FOR UNKNOWN INDICATION
     Dosage: UNK
     Dates: start: 1997
  8. CHOLECALCIFEROL [Concomitant]
     Indication: PRODUCT USED FOR UNKNOWN INDICATION
     Dosage: UNK
     Dates: start: 1997
  9. NEXIUM [Concomitant]
     Indication: GASTROOESOPHAGEAL REFLUX DISEASE
     Dosage: UNK
     Dates: start: 2008
  10. PREVACID [Concomitant]
     Indication: GASTROOESOPHAGEAL REFLUX DISEASE
     Dosage: 30 MG, DAILY
     Route: 048
     Dates: start: 2007
  11. NONSTEROIDAL ANTI-INFLAMMATORY DRUG (UNSPECIFIED) [Concomitant]
     Indication: PHLEBITIS SUPERFICIAL
  12. CALCIUM CARBONATE [Concomitant]
     Indication: OSTEOPOROSIS
     Dosage: 1500 MG, DAILY

REACTIONS (37)
  - Femur fracture [Unknown]
  - Intramedullary rod insertion [Unknown]
  - Fall [Unknown]
  - Device failure [Unknown]
  - Removal of internal fixation [Unknown]
  - Deep vein thrombosis [Unknown]
  - Cholecystectomy [Unknown]
  - Reversal of ileojejunal bypass [Unknown]
  - Biopsy liver [Unknown]
  - Postoperative ileus [Recovered/Resolved]
  - Renal failure chronic [Not Recovered/Not Resolved]
  - Large intestine perforation [Unknown]
  - Gastric operation [Unknown]
  - Respiratory disorder [Unknown]
  - Deep vein thrombosis [Unknown]
  - Hypertension [Unknown]
  - Appendicectomy [Unknown]
  - Hysterectomy [Unknown]
  - Haemorrhoid operation [Unknown]
  - Tendon operation [Unknown]
  - Ankle fracture [Unknown]
  - Urinary tract infection [Unknown]
  - Poor quality sleep [Unknown]
  - Stress [Unknown]
  - Hepatic steatosis [Unknown]
  - Varicose vein [Unknown]
  - Peripheral venous disease [Not Recovered/Not Resolved]
  - Hepatic function abnormal [Unknown]
  - Thyroid disorder [Unknown]
  - Nephrolithiasis [Unknown]
  - Dyspnoea exertional [Unknown]
  - Weight increased [Unknown]
  - Dysthymic disorder [Unknown]
  - Large intestinal polypectomy [Unknown]
  - Hypothyroidism [Unknown]
  - Asthenia [Unknown]
  - Diarrhoea [Not Recovered/Not Resolved]
